FAERS Safety Report 13184569 (Version 2)
Quarter: 2018Q1

REPORT INFORMATION
  Report Type: Spontaneous
  Country: US (occurrence: US)
  Receive Date: 20170203
  Receipt Date: 20180316
  Transmission Date: 20180508
  Serious: Yes (Hospitalization)
  Sender: FDA-Public Use
  Company Number: US-JNJFOC-20170128193

PATIENT
  Age: 72 Year
  Sex: Male
  Weight: 93.3 kg

DRUGS (2)
  1. VANCOMYCIN [Suspect]
     Active Substance: VANCOMYCIN
     Indication: PRODUCT USED FOR UNKNOWN INDICATION
     Route: 065
     Dates: end: 201606
  2. INVOKANA [Suspect]
     Active Substance: CANAGLIFLOZIN
     Indication: TYPE 2 DIABETES MELLITUS
     Route: 048
     Dates: start: 201412

REACTIONS (3)
  - Acute kidney injury [Recovering/Resolving]
  - Cerebrovascular accident [Recovering/Resolving]
  - Aortic valve stenosis [Unknown]

NARRATIVE: CASE EVENT DATE: 20160621
